FAERS Safety Report 17390957 (Version 3)
Quarter: 2020Q2

REPORT INFORMATION
  Report Type: Spontaneous
  Country: US (occurrence: US)
  Receive Date: 20200207
  Receipt Date: 20200512
  Transmission Date: 20200713
  Serious: No
  Sender: FDA-Public Use
  Company Number: US-LUPIN PHARMACEUTICALS INC.-2020-00415

PATIENT
  Age: 78 Year
  Sex: Male
  Weight: 88.44 kg

DRUGS (1)
  1. TESTOSTERONE TOPICAL SOLUTION, 30 MG/1.5 ML ACTUATION, CIII [Suspect]
     Active Substance: TESTOSTERONE
     Indication: BLOOD TESTOSTERONE DECREASED
     Dosage: 1 DOSAGE FORM, QD (30 MG)
     Route: 061
     Dates: start: 20200101, end: 20200119

REACTIONS (4)
  - Device malfunction [Unknown]
  - Incorrect dose administered [Unknown]
  - Product administered at inappropriate site [Unknown]
  - No adverse event [Unknown]

NARRATIVE: CASE EVENT DATE: 20200101
